FAERS Safety Report 4514766-3 (Version None)
Quarter: 2004Q4

REPORT INFORMATION
  Report Type: 
  Country: None (occurrence: None)
  Receive Date: 20041201
  Receipt Date: 20041119
  Transmission Date: 20050328
  Serious: Yes (Hospitalization)
  Sender: FDA-Public Use
  Company Number: US-JNJFOC-20040701811

PATIENT
  Sex: Female
  Weight: 83.46 kg

DRUGS (25)
  1. REMICADE [Suspect]
     Route: 042
  2. REMICADE [Suspect]
     Route: 042
  3. REMICADE [Suspect]
     Dosage: INTIATED IN INFLIXIMAB THERAPY ^4 YEARS AGO^
     Route: 042
  4. REMICADE [Suspect]
     Indication: RHEUMATOID ARTHRITIS
     Route: 042
  5. NITRO QUICK [Concomitant]
  6. MORFINE [Concomitant]
     Indication: RHEUMATOID ARTHRITIS
  7. IMURAN [Concomitant]
     Indication: RHEUMATOID ARTHRITIS
  8. PLAVIX [Concomitant]
  9. TOPROL-XL [Concomitant]
  10. ALTACE [Concomitant]
  11. ZOCOR [Concomitant]
  12. ASPIRIN [Concomitant]
  13. ADVAIR [Concomitant]
  14. ADVAIR [Concomitant]
  15. PREVACID [Concomitant]
  16. ELAVIL [Concomitant]
  17. FOSAMAX [Concomitant]
  18. LORCET-HD [Concomitant]
  19. PROSAM [Concomitant]
  20. LONOX [Concomitant]
  21. LONOX [Concomitant]
  22. RITALIN [Concomitant]
  23. TRILEPTIL [Concomitant]
  24. CALCIUM [Concomitant]
  25. DURAGESIC [Concomitant]

REACTIONS (2)
  - CORONARY ARTERY DISEASE [None]
  - DRUG INEFFECTIVE [None]
